FAERS Safety Report 6546490-X (Version None)
Quarter: 2010Q1

REPORT INFORMATION
  Report Type: 
  Country: None (occurrence: None)
  Receive Date: 20100122
  Receipt Date: 20100112
  Transmission Date: 20100710
  Serious: Yes (Other)
  Sender: FDA-Public Use
  Company Number: PHHY2010CH01580

PATIENT
  Sex: Male
  Weight: 31 kg

DRUGS (9)
  1. S-OIV FOCETRIA (NVD) [Suspect]
     Indication: IMMUNISATION
     Dosage: .5 ML
     Route: 030
     Dates: start: 20091120, end: 20091120
  2. S-OIV FOCETRIA (NVD) [Suspect]
     Dosage: .5 ML
     Route: 030
     Dates: start: 20091207, end: 20091207
  3. SANDIMMUNE [Suspect]
     Dosage: 50 MG, 2 PER DAY
  4. PREDNISONE [Suspect]
     Dosage: 5 MG, UNK
  5. IMUREK [Suspect]
     Dosage: 25 MG, 1 PER DAY
  6. TAMIFLU [Concomitant]
     Dosage: UNK
     Dates: start: 20091214, end: 20091218
  7. CALCITRIOL [Concomitant]
  8. POTASSIUM [Concomitant]
  9. GROWTH HORMONE [Concomitant]

REACTIONS (7)
  - COUGH [None]
  - H1N1 INFLUENZA [None]
  - NASAL CONGESTION [None]
  - PYREXIA [None]
  - UPPER RESPIRATORY TRACT INFECTION [None]
  - VACCINATION FAILURE [None]
  - VIRAL TEST POSITIVE [None]
